FAERS Safety Report 8776046 (Version 1)
Quarter: 2012Q4

REPORT INFORMATION
  Report Type: 
  Country: JP (occurrence: JP)
  Receive Date: 20120910
  Receipt Date: 20120910
  Transmission Date: 20130627
  Serious: Yes (Other)
  Sender: FDA-Public Use
  Company Number: JP-UCBSA-065016

PATIENT
  Age: 61 Year
  Sex: Male

DRUGS (4)
  1. E KEPPRA [Suspect]
     Indication: EPILEPSY
     Route: 048
     Dates: start: 20120704, end: 20120818
  2. SODIUM VALPROATE [Concomitant]
     Dosage: DAILY DOSE: 1200 MG
     Route: 048
     Dates: start: 20120808
  3. ALEVIATIN [Concomitant]
     Dosage: DAILY DOSE:300 MG
     Route: 048
  4. TEGRETOL [Concomitant]
     Dosage: DAILY DOSE: 800 MG
     Route: 048

REACTIONS (2)
  - Psychiatric symptom [Recovering/Resolving]
  - Intentional self-injury [Recovering/Resolving]
